FAERS Safety Report 16371205 (Version 1)
Quarter: 2019Q2

REPORT INFORMATION
  Report Type: Spontaneous
  Country: US (occurrence: US)
  Receive Date: 20190423
  Receipt Date: 20190423
  Transmission Date: 20190711
  Serious: Yes (Death)
  Sender: FDA-Public Use
  Company Number: None

PATIENT
  Age: 84 Year
  Sex: Male
  Weight: 73 kg

DRUGS (4)
  1. RITUXIMAB (MOAB C2B8 ANTI CD20, CHIMERIC) [Suspect]
     Active Substance: RITUXIMAB
     Dates: end: 20170530
  2. BENDAMUSTINE HYDROCHLORIDE. [Suspect]
     Active Substance: BENDAMUSTINE HYDROCHLORIDE
     Dates: end: 20160116
  3. VELCADE [Suspect]
     Active Substance: BORTEZOMIB
     Dates: end: 20160122
  4. LENALIDOMIDE (CC-5013) [Suspect]
     Active Substance: LENALIDOMIDE
     Dates: end: 20170531

REACTIONS (6)
  - Squamous cell carcinoma [None]
  - Malignant neoplasm progression [None]
  - Facial paresis [None]
  - Dysphagia [None]
  - Malnutrition [None]
  - Wound dehiscence [None]

NARRATIVE: CASE EVENT DATE: 20160603
